FAERS Safety Report 21365843 (Version 1)
Quarter: 2022Q3

REPORT INFORMATION
  Report Type: Spontaneous
  Country: CH (occurrence: CH)
  Receive Date: 20220922
  Receipt Date: 20220922
  Transmission Date: 20221026
  Serious: Yes (Other)
  Sender: FDA-Public Use
  Company Number: CH-TEVA-2022-CH-2074640

PATIENT
  Age: 66 Year
  Sex: Female
  Weight: 52 kg

DRUGS (2)
  1. FENTANYL [Suspect]
     Active Substance: FENTANYL
     Indication: Product used for unknown indication
     Route: 065
  2. CEFEPIME [Suspect]
     Active Substance: CEFEPIME HYDROCHLORIDE
     Indication: Product used for unknown indication
     Dosage: 2 GRAM DAILY; RECEIVED INFUSION OVER 30MINUTES
     Route: 050

REACTIONS (4)
  - Neurotoxicity [Recovering/Resolving]
  - Delirium [Recovering/Resolving]
  - Tremor [Recovering/Resolving]
  - Myoclonus [Recovering/Resolving]
